FAERS Safety Report 6485604-7 (Version None)
Quarter: 2009Q4

REPORT INFORMATION
  Report Type: 
  Country: None (occurrence: None)
  Receive Date: 20091204
  Receipt Date: 20090508
  Transmission Date: 20100525
  Serious: Yes (Hospitalization, Other)
  Sender: FDA-Public Use
  Company Number: 002362

PATIENT
  Sex: Male
  Weight: 98 kg

DRUGS (10)
  1. ROTIGOTINE (ROTIGOTINE) [Suspect]
     Indication: PARKINSON'S DISEASE
     Dosage: (2 MG QD), (4 MG QD), (6 MG QD)
     Dates: start: 20061115, end: 20061121
  2. RASAGILINE (RASAGILIN) [Suspect]
     Indication: PARKINSON'S DISEASE
     Dosage: (1 MG QD)
     Dates: start: 20060404, end: 20061121
  3. RASAGILINE (RASAGILIN) [Suspect]
     Indication: PARKINSON'S DISEASE
     Dosage: (1 MG QD)
     Dates: start: 20061122, end: 20080226
  4. RASAGILINE (RASAGILIN) [Suspect]
     Indication: PARKINSON'S DISEASE
     Dosage: (1 MG QD)
     Dates: start: 20080227
  5. LEVODOPA/CARBIDOPA (LEVODOPA/CARBIDOPA) (NOT SPECIFIED) [Suspect]
     Dosage: 50/12.5, (100/25 MG)
     Dates: start: 20090310, end: 20090730
  6. LISINOPRIL [Concomitant]
  7. AMANTADINE HCL [Concomitant]
  8. METOPROLOL TARTRATE [Concomitant]
  9. LEVOCOMP [Concomitant]
  10. LEVITRA [Concomitant]

REACTIONS (2)
  - SUDDEN ONSET OF SLEEP [None]
  - VARICOSE VEIN [None]
